FAERS Safety Report 7298511-7 (Version None)
Quarter: 2010Q4

REPORT INFORMATION
  Report Type: 
  Country: None (occurrence: None)
  Receive Date: 20101029
  Receipt Date: 20091120
  Transmission Date: 20110411
  Serious: Yes (Hospitalization)
  Sender: FDA-Public Use
  Company Number: 2009-4827

PATIENT
  Age: 3 Year
  Sex: Female
  Weight: 8.8 kg

DRUGS (2)
  1. INCRELEX [Suspect]
     Indication: GROWTH RETARDATION
     Dosage: 6 MG (1 MG,6 IN 1 D),SUBCUTANEOUS ; 0.24 MG/KG (0.12 MG,2 IN 1 D),SUBCUTANEOUS
     Route: 058
     Dates: start: 20080915, end: 20091026
  2. INCRELEX [Suspect]
     Indication: GROWTH RETARDATION
     Dosage: 6 MG (1 MG,6 IN 1 D),SUBCUTANEOUS ; 0.24 MG/KG (0.12 MG,2 IN 1 D),SUBCUTANEOUS
     Route: 058
     Dates: start: 20091101

REACTIONS (1)
  - DENTAL CARIES [None]
